FAERS Safety Report 8529037-8 (Version None)
Quarter: 2012Q3

REPORT INFORMATION
  Report Type: 
  Country: None (occurrence: None)
  Receive Date: 20120716
  Receipt Date: 20120716
  Transmission Date: 20120928
  Serious: Yes (Hospitalization)
  Sender: FDA-Public Use
  Company Number: None

PATIENT
  Sex: Male
  Weight: 72.57 kg

DRUGS (1)
  1. LEUPROLIDE ACETATE [Suspect]
     Dosage: 22.5 MG

REACTIONS (4)
  - DYSPNOEA [None]
  - CHEST DISCOMFORT [None]
  - CHEST PAIN [None]
  - PAIN [None]
